FAERS Safety Report 26094303 (Version 1)
Quarter: 2025Q4

REPORT INFORMATION
  Report Type: Spontaneous
  Country: CN (occurrence: CN)
  Receive Date: 20251126
  Receipt Date: 20251126
  Transmission Date: 20260118
  Serious: Yes (Other)
  Sender: PFIZER
  Company Number: CN-PFIZER INC-202500229534

PATIENT
  Age: 67 Year
  Sex: Female

DRUGS (1)
  1. XELJANZ [Suspect]
     Active Substance: TOFACITINIB CITRATE
     Route: 048

REACTIONS (6)
  - Cataract [Unknown]
  - Blood pressure increased [Recovering/Resolving]
  - Feeling abnormal [Unknown]
  - Dizziness [Unknown]
  - Headache [Unknown]
  - Neuralgia [Unknown]
